FAERS Safety Report 6942277-4 (Version None)
Quarter: 2010Q3

REPORT INFORMATION
  Report Type: 
  Country: None (occurrence: None)
  Receive Date: 20100826
  Receipt Date: 20100813
  Transmission Date: 20110219
  Serious: Yes (Other)
  Sender: FDA-Public Use
  Company Number: US-JNJCH-2010019323

PATIENT
  Sex: Female
  Weight: 62.6 kg

DRUGS (3)
  1. BENADRYL [Suspect]
     Indication: PRODUCT USED FOR UNKNOWN INDICATION
     Dosage: TEXT:UNKNOWN
     Route: 065
  2. REMICADE [Suspect]
     Indication: RHEUMATOID ARTHRITIS
     Dosage: TEXT:UNKNOWN
     Route: 042
     Dates: start: 20050101, end: 20070101
  3. METHOTREXATE [Concomitant]
     Indication: PRODUCT USED FOR UNKNOWN INDICATION
     Dosage: TEXT:UNKNOWN
     Route: 065
     Dates: start: 20060101, end: 20070101

REACTIONS (7)
  - CARPAL TUNNEL SYNDROME [None]
  - DRUG INEFFECTIVE [None]
  - FEELING HOT [None]
  - INFUSION RELATED REACTION [None]
  - NAUSEA [None]
  - PRURITUS [None]
  - SOMNOLENCE [None]
